FAERS Safety Report 10286144 (Version 1)
Quarter: 2014Q3

REPORT INFORMATION
  Report Type: Spontaneous
  Country: FR (occurrence: None)
  Receive Date: 20140703
  Receipt Date: 20140703
  Transmission Date: 20150326
  Serious: Yes (Other)
  Sender: FDA-Public Use
  Company Number: 2413839

PATIENT
  Age: 44 Year
  Sex: Female

DRUGS (7)
  1. (NOVONORM) [Concomitant]
  2. (LANTUS) [Concomitant]
  3. (JANUMET) [Concomitant]
  4. (SIMVASTATINE) [Concomitant]
  5. PAMIDRONIC ACID [Suspect]
     Active Substance: PAMIDRONIC ACID
     Indication: POLYARTHRITIS
     Dosage: 60MG 1 DAY INTRAVENOUS
     Route: 042
     Dates: start: 20140313, end: 20140314
  6. (SKENAN) [Concomitant]
  7. (METFORMINE) [Concomitant]

REACTIONS (1)
  - Thrombophlebitis superficial [None]

NARRATIVE: CASE EVENT DATE: 20140314
